FAERS Safety Report 21982693 (Version 2)
Quarter: 2023Q1

REPORT INFORMATION
  Report Type: Spontaneous
  Country: JP (occurrence: JP)
  Receive Date: 20230213
  Receipt Date: 20230314
  Transmission Date: 20230418
  Serious: Yes (Other)
  Sender: FDA-Public Use
  Company Number: JP-AUROBINDO-AUR-APL-2023-006341

PATIENT
  Age: 73 Year
  Sex: Female

DRUGS (2)
  1. FOLOTYN [Suspect]
     Active Substance: PRALATREXATE
     Indication: Angioimmunoblastic T-cell lymphoma
     Dosage: 30 MILLIGRAM/SQ. METER, EVERY WEEK
     Route: 042
  2. FOLOTYN [Suspect]
     Active Substance: PRALATREXATE
     Dosage: 20 MILLIGRAM/SQ. METER, EVERY WEEK
     Route: 042

REACTIONS (2)
  - Cytopenia [Unknown]
  - Stomatitis [Unknown]
